FAERS Safety Report 4664350-6 (Version None)
Quarter: 2005Q2

REPORT INFORMATION
  Report Type: 
  Country: None (occurrence: None)
  Receive Date: 20050518
  Receipt Date: 20050505
  Transmission Date: 20051028
  Serious: Yes (Hospitalization)
  Sender: FDA-Public Use
  Company Number: 2005UW07050

PATIENT
  Age: 17166 Day
  Sex: Female
  Weight: 61 kg

DRUGS (2)
  1. IRESSA [Suspect]
     Indication: NON-SMALL CELL LUNG CANCER RECURRENT
     Dosage: DAY 1 + 2
     Route: 048
     Dates: start: 20050419
  2. DOCETAXEL [Suspect]
     Indication: NON-SMALL CELL LUNG CANCER RECURRENT
     Dosage: DAY 3
     Route: 042
     Dates: start: 20050421

REACTIONS (1)
  - FEBRILE NEUTROPENIA [None]
